FAERS Safety Report 9474675 (Version 2)
Quarter: 2013Q4

REPORT INFORMATION
  Report Type: Spontaneous
  Country: DK (occurrence: IT)
  Receive Date: 20130823
  Receipt Date: 20131011
  Transmission Date: 20140711
  Serious: Yes (Hospitalization)
  Sender: FDA-Public Use
  Company Number: IT-FRI-1000048021

PATIENT
  Age: 48 Year
  Sex: Female

DRUGS (3)
  1. ESCITALOPRAM ORAL SOLUTION [Suspect]
     Indication: PRODUCT USED FOR UNKNOWN INDICATION
     Dosage: OVERDOSE: 300 MG
     Route: 048
     Dates: start: 20130421, end: 20130421
  2. LEXOTAN [Suspect]
     Indication: PRODUCT USED FOR UNKNOWN INDICATION
     Dosage: OVERDOSE: 30 MG
     Route: 048
     Dates: start: 20130421, end: 20130421
  3. TAVOR [Suspect]
     Indication: PRODUCT USED FOR UNKNOWN INDICATION
     Dosage: OVERDOSE: 25 MG
     Route: 048
     Dates: start: 20130421, end: 20130421

REACTIONS (4)
  - Suicide attempt [Not Recovered/Not Resolved]
  - Coma [Not Recovered/Not Resolved]
  - Sopor [Not Recovered/Not Resolved]
  - Intentional overdose [Not Recovered/Not Resolved]
